FAERS Safety Report 7251497-3 (Version None)
Quarter: 2011Q1

REPORT INFORMATION
  Report Type: 
  Country: None (occurrence: None)
  Receive Date: 20110128
  Receipt Date: 20110127
  Transmission Date: 20110831
  Serious: Yes (Death, Life-Threatening, Hospitalization)
  Sender: FDA-Public Use
  Company Number: PHHO2006NO09886

PATIENT
  Sex: Female
  Weight: 77 kg

DRUGS (1)
  1. IMATINIB [Suspect]
     Indication: GASTROINTESTINAL STROMAL TUMOUR
     Dosage: 400 MG, QD
     Route: 048
     Dates: start: 20060428

REACTIONS (8)
  - HYPOVENTILATION [None]
  - PULMONARY EMBOLISM [None]
  - ALVEOLITIS ALLERGIC [None]
  - PULMONARY FIBROSIS [None]
  - DYSPNOEA [None]
  - PNEUMONIA [None]
  - ACUTE RESPIRATORY FAILURE [None]
  - PNEUMONITIS [None]
